FAERS Safety Report 4587397-7 (Version None)
Quarter: 2005Q1

REPORT INFORMATION
  Report Type: 
  Country: None (occurrence: None)
  Receive Date: 20050218
  Receipt Date: 20050207
  Transmission Date: 20050727
  Serious: Yes (Hospitalization)
  Sender: FDA-Public Use
  Company Number: JP-JNJFOC-20040801041

PATIENT
  Sex: Male
  Weight: 60 kg

DRUGS (5)
  1. REMICADE [Suspect]
     Dosage: RECEIVED INFLIXIMAB 8 TIMES.
     Route: 042
  2. REMICADE [Suspect]
     Route: 042
  3. REMICADE [Suspect]
     Indication: CROHN'S DISEASE
     Route: 042
  4. IMURAN [Suspect]
     Indication: CROHN'S DISEASE
     Route: 049
  5. PENTASA [Concomitant]
     Indication: CROHN'S DISEASE
     Route: 049

REACTIONS (10)
  - ABDOMINAL PAIN UPPER [None]
  - ALANINE AMINOTRANSFERASE INCREASED [None]
  - ASPARTATE AMINOTRANSFERASE INCREASED [None]
  - DISSEMINATED INTRAVASCULAR COAGULATION [None]
  - DRUG EFFECT DECREASED [None]
  - ENTEROBACTER SEPSIS [None]
  - GAMMA-GLUTAMYLTRANSFERASE INCREASED [None]
  - INTERSTITIAL LUNG DISEASE [None]
  - PROCTALGIA [None]
  - PULMONARY EMBOLISM [None]
